FAERS Safety Report 24799443 (Version 1)
Quarter: 2025Q1

REPORT INFORMATION
  Report Type: Spontaneous
  Country: FI (occurrence: FI)
  Receive Date: 20250102
  Receipt Date: 20250102
  Transmission Date: 20250409
  Serious: Yes (Other)
  Sender: MYLAN
  Company Number: None

PATIENT
  Age: 22 Year
  Sex: Male

DRUGS (9)
  1. CLOZAPINE [Suspect]
     Active Substance: CLOZAPINE
     Indication: Psychotic disorder
     Dosage: , QD (12,5 MG - 200 MG A DAY)
     Route: 048
     Dates: start: 20240927, end: 20241021
  2. OLANZAPINE [Concomitant]
     Active Substance: OLANZAPINE
     Indication: Psychotic disorder
     Dosage: QD (1-2 TABLETS A DAY)
     Route: 048
     Dates: start: 20240827
  3. SERTRALINE [Concomitant]
     Active Substance: SERTRALINE HYDROCHLORIDE
     Indication: Depression
     Dosage: 100 MILLIGRAM, QD (1 TABLET A DAY)
     Route: 048
     Dates: start: 20240808
  4. SERTRALINE [Concomitant]
     Active Substance: SERTRALINE HYDROCHLORIDE
     Indication: Anxiety
  5. VALPROIC ACID [Concomitant]
     Active Substance: VALPROIC ACID
     Indication: Psychotic disorder
     Dosage: QD (1-3 TABLETS A DAY)
     Route: 048
     Dates: start: 20240731
  6. Temesta [Concomitant]
     Indication: Anxiety
     Dosage: QD (1-6 TABLETS A DAY)
     Route: 048
     Dates: start: 20240807
  7. ORICYCLIN [Concomitant]
     Indication: Acne
     Dosage: 500 MILLIGRAM, QD (1 TABLET A DAY)
     Route: 048
     Dates: start: 20240808
  8. ZUCLOPENTHIXOL [Concomitant]
     Active Substance: ZUCLOPENTHIXOL
     Indication: Psychotic disorder
     Route: 030
     Dates: start: 20241003, end: 20241003
  9. ZUCLOPENTHIXOL [Concomitant]
     Active Substance: ZUCLOPENTHIXOL
     Indication: Petit mal epilepsy

REACTIONS (5)
  - Eosinophilic colitis [Recovered/Resolved]
  - Pyrexia [Recovered/Resolved]
  - Troponin T increased [Recovered/Resolved]
  - N-terminal prohormone brain natriuretic peptide increased [Recovered/Resolved]
  - Lipase increased [Recovered/Resolved]

NARRATIVE: CASE EVENT DATE: 20241007
